FAERS Safety Report 8196518-9 (Version None)
Quarter: 2012Q1

REPORT INFORMATION
  Report Type: 
  Country: None (occurrence: None)
  Receive Date: 20120309
  Receipt Date: 20120228
  Transmission Date: 20120608
  Serious: Yes (Hospitalization)
  Sender: FDA-Public Use
  Company Number: US-US-EMD SERONO, INC.-7116296

PATIENT
  Sex: Female

DRUGS (2)
  1. REBIF [Suspect]
     Indication: PRODUCT USED FOR UNKNOWN INDICATION
     Route: 058
     Dates: start: 20120105, end: 20120105
  2. UNSPECIFED MEDICATIONS [Concomitant]

REACTIONS (5)
  - HYPONATRAEMIA [None]
  - VOMITING [None]
  - BLOOD CALCIUM ABNORMAL [None]
  - LIVER DISORDER [None]
  - CONVULSION [None]
